FAERS Safety Report 9439933 (Version 1)
Quarter: 2013Q3

REPORT INFORMATION
  Report Type: Report from Study
  Country: FR (occurrence: FR)
  Receive Date: 20130805
  Receipt Date: 20130805
  Transmission Date: 20140515
  Serious: Yes (Other)
  Sender: FDA-Public Use
  Company Number: FR-GENZYME-CAMP-1003049

PATIENT
  Sex: Female

DRUGS (2)
  1. CAMPATH [Suspect]
     Indication: CHRONIC LYMPHOCYTIC LEUKAEMIA
     Dosage: UNK
     Route: 065
     Dates: start: 201304, end: 20130522
  2. CAMPATH [Suspect]
     Dosage: UNK
     Route: 065
     Dates: start: 20130626, end: 20130626

REACTIONS (2)
  - Drug ineffective [Unknown]
  - Pancytopenia [Unknown]
